FAERS Safety Report 11300929 (Version 1)
Quarter: 2015Q2

REPORT INFORMATION
  Report Type: Spontaneous
  Country: US (occurrence: None)
  Receive Date: 20150625
  Receipt Date: 20150625
  Transmission Date: 20150821
  Serious: No
  Sender: FDA-Public Use
  Company Number: A-NJ2015-112350

PATIENT
  Age: 61 Year
  Sex: Female

DRUGS (1)
  1. OPSUMIT [Suspect]
     Active Substance: MACITENTAN
     Indication: LYMPHOCYTIC LEUKAEMIA
     Route: 048
     Dates: start: 20140321

REACTIONS (1)
  - Swelling [None]

NARRATIVE: CASE EVENT DATE: 20150130
